FAERS Safety Report 19498921 (Version 8)
Quarter: 2022Q2

REPORT INFORMATION
  Report Type: Spontaneous
  Country: JP (occurrence: JP)
  Receive Date: 20210707
  Receipt Date: 20220616
  Transmission Date: 20220721
  Serious: Yes (Hospitalization, Other)
  Sender: FDA-Public Use
  Company Number: JP-MSD-M2021-15736

PATIENT
  Age: 39 Year
  Sex: Female

DRUGS (1)
  1. KEYTRUDA [Suspect]
     Active Substance: PEMBROLIZUMAB
     Indication: Ovarian clear cell carcinoma
     Dosage: 200 MILLIGRAM, Q3W
     Route: 041
     Dates: start: 20210201

REACTIONS (7)
  - Pericardial effusion [Recovered/Resolved]
  - Cardiac tamponade [Recovering/Resolving]
  - Tumour pseudoprogression [Recovering/Resolving]
  - Skin disorder [Unknown]
  - Cortisol decreased [Recovered/Resolved]
  - Blood corticotrophin decreased [Recovered/Resolved]
  - Secondary adrenocortical insufficiency [Recovered/Resolved]

NARRATIVE: CASE EVENT DATE: 20210101
